FAERS Safety Report 4713599-2 (Version None)
Quarter: 2005Q3

REPORT INFORMATION
  Report Type: 
  Country: None (occurrence: None)
  Receive Date: 20050713
  Receipt Date: 20050704
  Transmission Date: 20060218
  Serious: Yes (Hospitalization)
  Sender: FDA-Public Use
  Company Number: JP-NOVOPROD-245300

PATIENT
  Sex: Male

DRUGS (2)
  1. NOVORAPID 30 MIX CHU FLEXPEN [Suspect]
     Indication: ILL-DEFINED DISORDER
  2. NOVOLIN R [Suspect]
     Indication: ILL-DEFINED DISORDER

REACTIONS (4)
  - ARTHRALGIA [None]
  - BACK PAIN [None]
  - PYREXIA [None]
  - SCROTAL SWELLING [None]
